FAERS Safety Report 5065725-6 (Version None)
Quarter: 2006Q3

REPORT INFORMATION
  Report Type: 
  Country: None (occurrence: None)
  Receive Date: 20060731
  Receipt Date: 20050919
  Transmission Date: 20061208
  Serious: Yes (Hospitalization)
  Sender: FDA-Public Use
  Company Number: US-ROCHE-418373

PATIENT
  Age: 90 Year
  Sex: Female

DRUGS (1)
  1. BONIVA [Suspect]
     Indication: DRUG USE FOR UNKNOWN INDICATION
     Route: 048

REACTIONS (7)
  - BREAST CANCER [None]
  - BREAST CANCER RECURRENT [None]
  - CHEST PAIN [None]
  - FALL [None]
  - GASTROINTESTINAL DISORDER [None]
  - MUSCLE SPASMS [None]
  - RIB FRACTURE [None]
